FAERS Safety Report 20514125 (Version 1)
Quarter: 2022Q1

REPORT INFORMATION
  Report Type: Spontaneous
  Country: US (occurrence: US)
  Receive Date: 20220224
  Receipt Date: 20220224
  Transmission Date: 20220423
  Serious: No
  Sender: FDA-Public Use
  Company Number: US-AMNEAL PHARMACEUTICALS-2021-AMRX-04451

PATIENT
  Age: 55 Year
  Sex: Male

DRUGS (2)
  1. RYTARY [Suspect]
     Active Substance: CARBIDOPA\LEVODOPA
     Indication: Product used for unknown indication
     Dosage: 36.25-145 MG 3 CAPSULES, 4X/DAY
     Route: 048
  2. RYTARY [Suspect]
     Active Substance: CARBIDOPA\LEVODOPA
     Dosage: 48.75-195 MG 3 CAPSULES, 4X/DAY
     Route: 048
     Dates: start: 20210827

REACTIONS (4)
  - Movement disorder [Unknown]
  - Musculoskeletal stiffness [Unknown]
  - Prescribed overdose [Unknown]
  - Therapy cessation [Unknown]

NARRATIVE: CASE EVENT DATE: 20210827
